FAERS Safety Report 8641109 (Version 7)
Quarter: 2013Q2

REPORT INFORMATION
  Report Type: Report from Study
  Country: JP (occurrence: JP)
  Receive Date: 20120628
  Receipt Date: 20130516
  Transmission Date: 20140414
  Serious: Yes (Life-Threatening, Hospitalization)
  Sender: FDA-Public Use
  Company Number: JP-PFIZER INC-2012150289

PATIENT
  Age: 41 Year
  Sex: Female
  Weight: 43.6 kg

DRUGS (10)
  1. XALKORI [Suspect]
     Indication: NON-SMALL CELL LUNG CANCER
     Dosage: 250 MG, 2X/DAY
     Route: 048
     Dates: start: 20120424, end: 20120611
  2. XALKORI [Suspect]
     Dosage: 250 MG, 2X/DAY
     Route: 048
     Dates: start: 20120731, end: 20120808
  3. BAKTAR [Concomitant]
     Dosage: 1 DF, 1X/DAY
     Route: 048
  4. DEPAKENE [Concomitant]
     Dosage: UNK
     Route: 048
  5. MAGMITT [Concomitant]
     Dosage: 990 MG, 3X/DAY
     Route: 048
  6. DECADRON [Concomitant]
     Dosage: 2 MG, 2X/DAY
     Route: 048
  7. GASTER [Concomitant]
     Dosage: 40 MG, 2X/DAY
     Route: 048
     Dates: end: 20120611
  8. MENILET [Concomitant]
     Dosage: 90 G, 3X/DAY
     Route: 048
     Dates: start: 20120510, end: 20120609
  9. THYRADIN S [Concomitant]
     Dosage: 37.5 UG, 1X/DAY
     Route: 048
     Dates: start: 20120531
  10. OMEPRAL [Concomitant]
     Dosage: 20 MG, 1X/DAY
     Route: 048
     Dates: start: 20120612

REACTIONS (4)
  - Bronchopulmonary aspergillosis [Not Recovered/Not Resolved]
  - Haemoglobin decreased [Recovered/Resolved with Sequelae]
  - Neutrophil count decreased [Recovered/Resolved]
  - Loss of consciousness [Recovered/Resolved with Sequelae]
